FAERS Safety Report 16887260 (Version 1)
Quarter: 2019Q4

REPORT INFORMATION
  Report Type: Report from Study
  Country: US (occurrence: US)
  Receive Date: 20191004
  Receipt Date: 20191004
  Transmission Date: 20200122
  Serious: Yes (Death, Hospitalization)
  Sender: FDA-Public Use
  Company Number: US-ALLERGAN-1940288US

PATIENT
  Sex: Male

DRUGS (1)
  1. MEMANTINE HCL 28MG CAP (TBD) [Suspect]
     Active Substance: MEMANTINE
     Indication: DEMENTIA ALZHEIMER^S TYPE
     Dosage: 28 MG, UNKNOWN

REACTIONS (2)
  - Cardiac arrest [Unknown]
  - Death [Fatal]
